FAERS Safety Report 10748863 (Version 1)
Quarter: 2015Q1

REPORT INFORMATION
  Report Type: Spontaneous
  Country: US (occurrence: None)
  Receive Date: 20150128
  Receipt Date: 20150128
  Transmission Date: 20150721
  Serious: Yes (Disabling)
  Sender: FDA-Public Use
  Company Number: None

PATIENT
  Age: 64 Year
  Sex: Male
  Weight: 124.74 kg

DRUGS (1)
  1. LITHIUM CARB [Suspect]
     Active Substance: LITHIUM CARBONATE
     Indication: BIPOLAR I DISORDER
     Dosage: 3 + 1 IN MORNING AT BEDIME
     Route: 048
     Dates: start: 20140901

REACTIONS (5)
  - Pollakiuria [None]
  - Palpitations [None]
  - Tremor [None]
  - Asthenia [None]
  - Food craving [None]

NARRATIVE: CASE EVENT DATE: 20140909
